FAERS Safety Report 23535568 (Version 1)
Quarter: 2024Q1

REPORT INFORMATION
  Report Type: Spontaneous
  Country: US (occurrence: US)
  Receive Date: 20240218
  Receipt Date: 20240218
  Transmission Date: 20240409
  Serious: No
  Sender: FDA-Public Use
  Company Number: US-ELI_LILLY_AND_COMPANY-US202402008564

PATIENT
  Age: 55 Year

DRUGS (2)
  1. TALTZ [Suspect]
     Active Substance: IXEKIZUMAB
     Indication: Psoriasis
     Dosage: 160 MG, OTHER (LOADING DOSE)
     Route: 065
     Dates: start: 20231220
  2. TALTZ [Suspect]
     Active Substance: IXEKIZUMAB
     Indication: Pustular psoriasis
     Dosage: 80 MG, OTHER (EVERY WEEK)
     Route: 065

REACTIONS (2)
  - Inappropriate schedule of product administration [Unknown]
  - Overdose [Unknown]
